FAERS Safety Report 10044553 (Version 1)
Quarter: 2014Q1

REPORT INFORMATION
  Report Type: Spontaneous
  Country: CO (occurrence: CO)
  Receive Date: 20140328
  Receipt Date: 20140328
  Transmission Date: 20141002
  Serious: Yes (Other)
  Sender: FDA-Public Use
  Company Number: CO-PFIZER INC-2014086003

PATIENT
  Age: 41 Year
  Sex: Male

DRUGS (2)
  1. CARDURAN XL [Suspect]
     Indication: BENIGN PROSTATIC HYPERPLASIA
     Dosage: 4 MG, 1X/DAY
     Route: 048
     Dates: start: 20131224, end: 20140220
  2. CARDURAN XL [Suspect]
     Indication: URINE ANALYSIS ABNORMAL

REACTIONS (2)
  - Prostate cancer [Recovering/Resolving]
  - Off label use [Unknown]
